FAERS Safety Report 6078505-X (Version None)
Quarter: 2009Q1

REPORT INFORMATION
  Report Type: 
  Country: None (occurrence: None)
  Receive Date: 20090211
  Receipt Date: 20090211
  Transmission Date: 20090719
  Serious: Yes (Other)
  Sender: FDA-Public Use
  Company Number: None

PATIENT
  Age: 38 Year
  Sex: Female
  Weight: 97.0698 kg

DRUGS (2)
  1. METOCLOPRAMIDE [Suspect]
     Indication: DYSPEPSIA
     Dosage: 1 TABLET 4 TIMES A DAY
     Dates: start: 20090116, end: 20090210
  2. METOCLOPRAMIDE [Suspect]
     Indication: NAUSEA
     Dosage: 1 TABLET 4 TIMES A DAY
     Dates: start: 20090116, end: 20090210

REACTIONS (1)
  - TREMOR [None]
